FAERS Safety Report 7946469-7 (Version None)
Quarter: 2011Q4

REPORT INFORMATION
  Report Type: 
  Country: None (occurrence: None)
  Receive Date: 20111129
  Receipt Date: 20111123
  Transmission Date: 20120403
  Serious: Yes (Death, Other)
  Sender: FDA-Public Use
  Company Number: US-BAYER-2011-006377

PATIENT
  Age: 73 Year
  Sex: Female
  Weight: 77 kg

DRUGS (18)
  1. RED BLOOD CELLS [Concomitant]
     Dosage: UNK
     Dates: start: 19991224
  2. COZAAR [Concomitant]
     Dosage: 100 MG, QD
     Route: 048
  3. VERAPAMIL [Concomitant]
     Dosage: UNK
     Route: 022
     Dates: start: 19991217, end: 19991217
  4. NITROGLYCERIN [Concomitant]
     Route: 042
  5. TISSUE PLASMINOGEN ACTIVATOR [Concomitant]
     Dosage: UNK
     Route: 042
     Dates: start: 19991217, end: 19991217
  6. MOTRIN [Concomitant]
     Dosage: UNK
     Route: 048
  7. DOPAMINE HCL [Concomitant]
     Dosage: UNK
     Route: 042
     Dates: start: 19991220
  8. HEPARIN [Concomitant]
     Dosage: UNK
     Route: 042
     Dates: start: 19991220
  9. LASIX [Concomitant]
     Dosage: 80MG EVERY 8 HOURS
     Route: 042
     Dates: start: 19991217
  10. PLATELETS [Concomitant]
     Dosage: UNK
     Dates: start: 19991224
  11. TRASYLOL [Suspect]
     Indication: CORONARY ARTERY BYPASS
     Dosage: OTHER
     Dates: start: 19991224
  12. INSULIN [Concomitant]
     Dosage: DRIP AND SLIDING SCALE
     Route: 058
     Dates: start: 19991217
  13. INSULIN [Concomitant]
     Dosage: DRIP AND SLIDING SCALE
     Route: 042
     Dates: start: 19991217
  14. GLYBURIDE [Concomitant]
     Dosage: 2.5 MG, BID
     Route: 048
  15. DOBUTAMINE HCL [Concomitant]
     Dosage: UNK
     Route: 042
     Dates: start: 19991220
  16. TRASYLOL [Suspect]
  17. NITROGLYCERIN [Concomitant]
     Dosage: UNK
     Route: 060
     Dates: start: 19991217, end: 19991217
  18. PREVACID [Concomitant]
     Dosage: UNK
     Route: 048
     Dates: start: 19991220

REACTIONS (13)
  - DEATH [None]
  - RENAL INJURY [None]
  - FEAR [None]
  - INJURY [None]
  - EMOTIONAL DISTRESS [None]
  - STRESS [None]
  - ANXIETY [None]
  - UNEVALUABLE EVENT [None]
  - PAIN [None]
  - ANHEDONIA [None]
  - RENAL FAILURE [None]
  - MULTI-ORGAN FAILURE [None]
  - RENAL IMPAIRMENT [None]
